FAERS Safety Report 13237374 (Version 1)
Quarter: 2017Q1

REPORT INFORMATION
  Report Type: Spontaneous
  Country: CH (occurrence: CH)
  Receive Date: 20170215
  Receipt Date: 20170215
  Transmission Date: 20170428
  Serious: Yes (Congenital Anomaly)
  Sender: FDA-Public Use
  Company Number: CH-ABBVIE-17P-151-1874894-00

PATIENT
  Age: 12 Year
  Sex: Male

DRUGS (1)
  1. DEPAKINE [Suspect]
     Active Substance: VALPROATE SODIUM
     Indication: MATERNAL EXPOSURE TIMING UNSPECIFIED
     Route: 064

REACTIONS (7)
  - Cognitive disorder [Unknown]
  - Autism spectrum disorder [Unknown]
  - Toe walking [Unknown]
  - Foetal exposure during pregnancy [Unknown]
  - Motor dysfunction [Unknown]
  - Movement disorder [Unknown]
  - Dysmorphism [Unknown]
